FAERS Safety Report 5830510-1 (Version None)
Quarter: 2008Q3

REPORT INFORMATION
  Report Type: 
  Country: None (occurrence: None)
  Receive Date: 20080801
  Receipt Date: 20070618
  Transmission Date: 20090109
  Serious: No
  Sender: FDA-Public Use
  Company Number: US-BRISTOL-MYERS SQUIBB COMPANY-13817861

PATIENT
  Age: 57 Year
  Sex: Female
  Weight: 63 kg

DRUGS (4)
  1. COUMADIN [Suspect]
     Indication: THROMBOSIS
     Dosage: 7 MD DAILY FOR 3 DAYS AND 5 MG DAILY FOR 4 DAYS.
     Route: 048
     Dates: start: 20030101
  2. PLAVIX [Suspect]
     Indication: THROMBOSIS
     Route: 048
     Dates: start: 20030101
  3. NORVASC [Concomitant]
  4. BONIVA [Concomitant]

REACTIONS (2)
  - DYSPNOEA [None]
  - EPISTAXIS [None]
